FAERS Safety Report 8418720-0 (Version None)
Quarter: 2012Q2

REPORT INFORMATION
  Report Type: 
  Country: None (occurrence: None)
  Receive Date: 20120531
  Receipt Date: 20120515
  Transmission Date: 20120825
  Serious: Yes (Congenital Anomaly)
  Sender: FDA-Public Use
  Company Number: DIAZ20120009

PATIENT
  Age: 11 Month

DRUGS (2)
  1. DIAZEPAM [Suspect]
     Indication: MATERNAL DRUGS AFFECTING FOETUS
     Dosage: ,,TRANSPLACENTAL
     Route: 064
  2. METHADONE HCL [Suspect]
     Indication: MATERNAL DRUGS AFFECTING FOETUS
     Dosage: ,,TRANSPLACENTAL
     Route: 064

REACTIONS (4)
  - STRABISMUS CONGENITAL [None]
  - MATERNAL DRUGS AFFECTING FOETUS [None]
  - VISUAL EVOKED POTENTIALS ABNORMAL [None]
  - CONGENITAL NYSTAGMUS [None]
